FAERS Safety Report 6194493-X (Version None)
Quarter: 2009Q2

REPORT INFORMATION
  Report Type: 
  Country: None (occurrence: None)
  Receive Date: 20090514
  Receipt Date: 20090421
  Transmission Date: 20091009
  Serious: Yes (Hospitalization)
  Sender: FDA-Public Use
  Company Number: JPI-P-003571

PATIENT
  Age: 70 Year
  Sex: Male
  Weight: 132.9 kg

DRUGS (7)
  1. XYREM [Suspect]
     Indication: DRUG USE FOR UNKNOWN INDICATION
     Dosage: 4 GM (4.5 GM,2 IN 1 D),ORAL
     Route: 048
     Dates: start: 20071206
  2. RIMONABANT [Concomitant]
  3. ACETYLSALICYLIC ACID SRT [Concomitant]
  4. LISINOPRIL [Concomitant]
  5. SIMVASTATIN [Concomitant]
  6. NITROGLYCERIN [Concomitant]
  7. TRINITRATE [Concomitant]

REACTIONS (7)
  - ANGINA PECTORIS [None]
  - ASTHMA [None]
  - CARDIOMEGALY [None]
  - CONDITION AGGRAVATED [None]
  - DYSPNOEA [None]
  - LEFT VENTRICULAR DYSFUNCTION [None]
  - LOWER RESPIRATORY TRACT INFECTION [None]
